FAERS Safety Report 17268482 (Version 2)
Quarter: 2020Q1

REPORT INFORMATION
  Report Type: Report from Study
  Country: US (occurrence: US)
  Receive Date: 20200114
  Receipt Date: 20200131
  Transmission Date: 20200409
  Serious: No
  Sender: FDA-Public Use
  Company Number: US-BEH-2019111277

PATIENT
  Age: 54 Year
  Sex: Female
  Weight: 84.59 kg

DRUGS (5)
  1. HAEGARDA [Suspect]
     Active Substance: HUMAN C1-ESTERASE INHIBITOR
     Indication: PROPHYLAXIS
     Dosage: 5000 INTERNATIONAL UNIT, BIW (EVERY 3 TO 4 DAYS 28 DAYS)
     Route: 058
     Dates: start: 20191211
  2. LANADELUMAB [Concomitant]
     Active Substance: LANADELUMAB
  3. FIRAZYR [Concomitant]
     Active Substance: ICATIBANT ACETATE
  4. HAEGARDA [Suspect]
     Active Substance: HUMAN C1-ESTERASE INHIBITOR
     Dosage: UNK
     Route: 058
     Dates: start: 20191227, end: 20191227
  5. HAEGARDA [Suspect]
     Active Substance: HUMAN C1-ESTERASE INHIBITOR
     Indication: HEREDITARY ANGIOEDEMA
     Dosage: BIW (EVERY 3 TO 4 DAYS)
     Route: 058
     Dates: start: 20191223

REACTIONS (4)
  - Insomnia [Recovered/Resolved]
  - Pain [Recovered/Resolved]
  - Injection site pain [Unknown]
  - Injection site swelling [Unknown]

NARRATIVE: CASE EVENT DATE: 20191227
